FAERS Safety Report 5808128-6 (Version None)
Quarter: 2008Q3

REPORT INFORMATION
  Report Type: 
  Country: None (occurrence: None)
  Receive Date: 20080711
  Receipt Date: 20080701
  Transmission Date: 20090109
  Serious: Yes (Other)
  Sender: FDA-Public Use
  Company Number: DE-PFIZER INC-2008056083

PATIENT
  Sex: Female

DRUGS (6)
  1. LYRICA [Suspect]
     Indication: GENERALISED ANXIETY DISORDER
     Route: 048
  2. MIRTAZAPINE [Concomitant]
     Dosage: DAILY DOSE:30MG
  3. SOLVEX [Concomitant]
     Dosage: DAILY DOSE:4MG
  4. ZOPLICONE [Concomitant]
  5. LORAZEPAM [Concomitant]
  6. ASPIRIN [Concomitant]

REACTIONS (1)
  - HEPATIC ENZYME INCREASED [None]
